FAERS Safety Report 6758127-5 (Version None)
Quarter: 2010Q2

REPORT INFORMATION
  Report Type: 
  Country: None (occurrence: None)
  Receive Date: 20100603
  Receipt Date: 20100512
  Transmission Date: 20101027
  Serious: Yes (Life-Threatening, Hospitalization)
  Sender: FDA-Public Use
  Company Number: 2010AP001002

PATIENT
  Age: 75 Year
  Sex: Female

DRUGS (5)
  1. OMEPRAZOLE [Suspect]
     Indication: PROPHYLAXIS AGAINST GASTROINTESTINAL ULCER
  2. PANTOPRAZOLE SODIUM [Suspect]
     Indication: PROPHYLAXIS AGAINST GASTROINTESTINAL ULCER
     Dosage: 40 MG; QD;
  3. BENDROFLUMETHIAZIDE [Concomitant]
  4. MAGNESIUM [Concomitant]
  5. RANITIDINE [Concomitant]

REACTIONS (7)
  - BLOOD CALCIUM DECREASED [None]
  - FALL [None]
  - FATIGUE [None]
  - GRAND MAL CONVULSION [None]
  - HYPOMAGNESAEMIA [None]
  - LARYNGEAL OEDEMA [None]
  - PULMONARY OEDEMA [None]
